FAERS Safety Report 17467804 (Version 1)
Quarter: 2020Q1

REPORT INFORMATION
  Report Type: Spontaneous
  Country: US (occurrence: US)
  Receive Date: 20200227
  Receipt Date: 20200227
  Transmission Date: 20200409
  Serious: Yes (Other)
  Sender: FDA-Public Use
  Company Number: US-SA-2020SA050258

PATIENT
  Age: 36 Year
  Sex: Female

DRUGS (16)
  1. PROBIOTIC 10 [Concomitant]
     Active Substance: DIETARY SUPPLEMENT\PROBIOTICS
  2. VITAMIN D3 [Concomitant]
     Active Substance: CHOLECALCIFEROL
  3. PREDNISONE. [Concomitant]
     Active Substance: PREDNISONE
  4. LEFLUNOMIDE. [Concomitant]
     Active Substance: LEFLUNOMIDE
  5. VALSARTAN AND HYDROCHLOROTHIAZIDE [Concomitant]
     Active Substance: HYDROCHLOROTHIAZIDE\VALSARTAN
  6. GABAPENTIN. [Concomitant]
     Active Substance: GABAPENTIN
  7. CELEBREX [Concomitant]
     Active Substance: CELECOXIB
  8. KEVZARA [Suspect]
     Active Substance: SARILUMAB
     Indication: RHEUMATOID ARTHRITIS
     Dosage: 200 MG, QOW
     Route: 058
     Dates: start: 20200116
  9. MORPHINE SULPHATE [Concomitant]
     Active Substance: MORPHINE SULFATE
  10. TIZANIDINE HCL [Concomitant]
     Active Substance: TIZANIDINE HYDROCHLORIDE
  11. AMLODIPINE BESYLATE. [Concomitant]
     Active Substance: AMLODIPINE BESYLATE
  12. NORTRIPTYLINE HCL [Concomitant]
     Active Substance: NORTRIPTYLINE HYDROCHLORIDE
  13. OXYGEN. [Concomitant]
     Active Substance: OXYGEN
  14. OXYCODONE HYDROCHLORIDE. [Concomitant]
     Active Substance: OXYCODONE HYDROCHLORIDE
  15. DULOXETINE HCL [Concomitant]
     Active Substance: DULOXETINE HYDROCHLORIDE
  16. PROAIR HFA [Concomitant]
     Active Substance: ALBUTEROL SULFATE

REACTIONS (8)
  - Condition aggravated [Unknown]
  - Pain [Unknown]
  - Rheumatoid arthritis [Unknown]
  - Insomnia [Unknown]
  - Fatigue [Unknown]
  - Chills [Unknown]
  - Body temperature decreased [Unknown]
  - Head discomfort [Unknown]

NARRATIVE: CASE EVENT DATE: 20200213
